FAERS Safety Report 5382123-6 (Version None)
Quarter: 2007Q3

REPORT INFORMATION
  Report Type: 
  Country: None (occurrence: None)
  Receive Date: 20070705
  Receipt Date: 20070629
  Transmission Date: 20080115
  Serious: Yes (Other)
  Sender: FDA-Public Use
  Company Number: 015585

PATIENT
  Age: 63 Year
  Sex: Female

DRUGS (4)
  1. MEDROXYPROGESTERONE [Suspect]
     Dosage: ORAL
     Route: 048
     Dates: start: 19920101, end: 19990105
  2. PREMARIN [Suspect]
     Dosage: 1.25 MG, ORAL
     Route: 048
     Dates: start: 19920101, end: 19990105
  3. PROVERA [Suspect]
     Dosage: 10 MG, ORAL
     Route: 048
     Dates: start: 19920101, end: 19990105
  4. PREMPRO [Suspect]
     Dosage: ORAL
     Route: 048
     Dates: start: 19990106, end: 20020901

REACTIONS (1)
  - BREAST CANCER FEMALE [None]
